FAERS Safety Report 8120872-7 (Version None)
Quarter: 2012Q1

REPORT INFORMATION
  Report Type: 
  Country: None (occurrence: None)
  Receive Date: 20120203
  Receipt Date: 20120117
  Transmission Date: 20120608
  Serious: Yes (Other)
  Sender: FDA-Public Use
  Company Number: 20120018

PATIENT
  Age: 34 Year
  Sex: Female

DRUGS (2)
  1. CEFTRIAXONE [Suspect]
     Indication: POST PROCEDURAL INFECTION
     Dosage: INTRAVENOUS
     Route: 042
  2. VANCOMYCIN [Suspect]
     Indication: POST PROCEDURAL INFECTION
     Dosage: INTRAVENOUS
     Route: 042

REACTIONS (6)
  - DUODENITIS [None]
  - CYTOMEGALOVIRUS INFECTION [None]
  - ODYNOPHAGIA [None]
  - DRUG RASH WITH EOSINOPHILIA AND SYSTEMIC SYMPTOMS [None]
  - OESOPHAGITIS [None]
  - HYPOTENSION [None]
